FAERS Safety Report 25141202 (Version 1)
Quarter: 2025Q1

REPORT INFORMATION
  Report Type: Spontaneous
  Country: CA (occurrence: CA)
  Receive Date: 20250331
  Receipt Date: 20250331
  Transmission Date: 20250409
  Serious: Yes (Death)
  Sender: PFIZER
  Company Number: CA-PFIZER INC-PV202400060007

PATIENT
  Age: 40 Year
  Sex: Male

DRUGS (2)
  1. BRAFTOVI [Suspect]
     Active Substance: ENCORAFENIB
     Indication: Colorectal cancer metastatic
     Dosage: 300 MG, 1X/DAY
     Route: 048
     Dates: start: 20240418
  2. CETUXIMAB [Concomitant]
     Active Substance: CETUXIMAB

REACTIONS (1)
  - Death [Fatal]
